FAERS Safety Report 8522664-3 (Version None)
Quarter: 2012Q3

REPORT INFORMATION
  Report Type: 
  Country: None (occurrence: None)
  Receive Date: 20120719
  Receipt Date: 20120716
  Transmission Date: 20120928
  Serious: Yes (Hospitalization, Congenital Anomaly)
  Sender: FDA-Public Use
  Company Number: US-GLAXOSMITHKLINE-A0851847A

PATIENT
  Sex: Male
  Weight: 2.5 kg

DRUGS (9)
  1. PAXIL [Suspect]
     Indication: BIPOLAR DISORDER
     Dosage: 20MG PER DAY
     Route: 064
     Dates: start: 20010529, end: 20021008
  2. PEN-VEE K [Concomitant]
     Dates: start: 20010529
  3. AMOXICILLIN [Concomitant]
     Dates: start: 20020101
  4. CLINDAMYCIN [Concomitant]
     Dates: start: 20010610
  5. TERBUTALINE [Concomitant]
     Route: 064
  6. NITROFURANTOIN [Concomitant]
     Dates: start: 20010801
  7. CELEXA [Concomitant]
     Route: 064
     Dates: end: 20010529
  8. MULTI-VITAMINS [Concomitant]
     Route: 064
     Dates: start: 20010529
  9. PENICILLIN [Concomitant]
     Dates: end: 20010702

REACTIONS (15)
  - SPEECH DISORDER DEVELOPMENTAL [None]
  - UMBILICAL CORD SHORT [None]
  - PATENT DUCTUS ARTERIOSUS [None]
  - COLOBOMA [None]
  - CONGENITAL AORTIC STENOSIS [None]
  - FOETAL EXPOSURE DURING PREGNANCY [None]
  - PULMONARY VALVE STENOSIS [None]
  - CONGENITAL TRACHEOMALACIA [None]
  - SINGLE UMBILICAL ARTERY [None]
  - ATRIAL SEPTAL DEFECT [None]
  - GASTROOESOPHAGEAL REFLUX DISEASE [None]
  - BRACHYCEPHALY [None]
  - ASTHMA [None]
  - CARDIAC MURMUR [None]
  - CRANIOSYNOSTOSIS [None]
